FAERS Safety Report 9875987 (Version 1)
Quarter: 2014Q1

REPORT INFORMATION
  Report Type: Spontaneous
  Country: US (occurrence: None)
  Receive Date: 20140205
  Receipt Date: 20140205
  Transmission Date: 20141002
  Serious: Yes (Life-Threatening)
  Sender: FDA-Public Use
  Company Number: None

PATIENT
  Age: 22 Year
  Sex: Male

DRUGS (6)
  1. CEFAZOLIN [Suspect]
     Indication: INFECTION PROPHYLAXIS
     Route: 042
     Dates: start: 20140124, end: 20140124
  2. ROCURONIUM [Concomitant]
  3. SUCCINOCHOLINE [Concomitant]
  4. FAMOTIDINE [Concomitant]
  5. ONDANSETRON [Concomitant]
  6. METOCLOPRAMIDE [Concomitant]

REACTIONS (1)
  - Anaphylactic reaction [None]
